FAERS Safety Report 10389436 (Version 3)
Quarter: 2014Q4

REPORT INFORMATION
  Report Type: Report from Study
  Country: US (occurrence: US)
  Receive Date: 20140818
  Receipt Date: 20141006
  Transmission Date: 20150528
  Serious: Yes (Hospitalization, Other)
  Sender: FDA-Public Use
  Company Number: US-BIOGENIDEC-2014BI081434

PATIENT
  Age: 58 Year
  Sex: Female

DRUGS (3)
  1. AVONEX [Suspect]
     Active Substance: INTERFERON BETA-1A
     Indication: MULTIPLE SCLEROSIS
     Route: 030
     Dates: start: 19990401
  2. AVONEX [Suspect]
     Active Substance: INTERFERON BETA-1A
     Indication: MULTIPLE SCLEROSIS
     Route: 030
  3. AVONEX [Suspect]
     Active Substance: INTERFERON BETA-1A
     Indication: MULTIPLE SCLEROSIS
     Route: 030
     Dates: end: 20140820

REACTIONS (14)
  - Fibula fracture [Recovered/Resolved]
  - Haematoma [Recovered/Resolved]
  - Injection site reaction [Unknown]
  - Injection site scar [Unknown]
  - Post procedural complication [Unknown]
  - Memory impairment [Not Recovered/Not Resolved]
  - Injection site haemorrhage [Recovered/Resolved]
  - Migraine [Unknown]
  - Fall [Recovered/Resolved]
  - Influenza like illness [Recovered/Resolved]
  - Abscess limb [Recovered/Resolved]
  - Lack of injection site rotation [Recovered/Resolved]
  - Patella fracture [Recovered/Resolved]
  - Necrosis [Unknown]

NARRATIVE: CASE EVENT DATE: 19990401
